FAERS Safety Report 4388116-X (Version None)
Quarter: 2004Q2

REPORT INFORMATION
  Report Type: 
  Country: None (occurrence: None)
  Receive Date: 20040629
  Receipt Date: 20040629
  Transmission Date: 20050107
  Serious: Yes (Hospitalization)
  Sender: FDA-Public Use
  Company Number: None

PATIENT
  Age: 71 Year
  Sex: Male
  Weight: 62 kg

DRUGS (3)
  1. LEVOFLOXACIN [Suspect]
     Indication: PNEUMONIA
     Dosage: 500 AND 250 MG ONCE EACH INTRAVENOUS
     Route: 042
     Dates: start: 20040616, end: 20040617
  2. . [Concomitant]
  3. ZIPRASIDONE 60MG [Suspect]
     Indication: SCHIZOPHRENIA
     Dosage: 60MG BID ORAL
     Route: 048
     Dates: start: 20030901, end: 20040616

REACTIONS (6)
  - CARDIAC FAILURE CONGESTIVE [None]
  - CONDITION AGGRAVATED [None]
  - LOSS OF CONSCIOUSNESS [None]
  - PNEUMONIA [None]
  - PULSE ABSENT [None]
  - TORSADE DE POINTES [None]
